FAERS Safety Report 24417009 (Version 1)
Quarter: 2024Q4

REPORT INFORMATION
  Report Type: Spontaneous
  Country: US (occurrence: None)
  Receive Date: 20241009
  Receipt Date: 20241009
  Transmission Date: 20250115
  Serious: Yes (Disabling, Other)
  Sender: Public
  Company Number: None

PATIENT
  Age: 77 Year
  Sex: Female
  Weight: 86.18 kg

DRUGS (31)
  1. RECLAST [Suspect]
     Active Substance: ZOLEDRONIC ACID
     Indication: Osteopenia
     Dosage: FREQUENCY : ONCE;?
     Route: 042
     Dates: start: 20240819
  2. PRED FORTE [Suspect]
     Active Substance: PREDNISOLONE ACETATE
  3. CYCLOGYL [Suspect]
     Active Substance: CYCLOPENTOLATE HYDROCHLORIDE
  4. Diltiazem ER 360 [Concomitant]
  5. SPIRONOLACTONE [Concomitant]
     Active Substance: SPIRONOLACTONE
  6. Benicar 5mg [Concomitant]
  7. MONTELUKAST SODIUM [Concomitant]
     Active Substance: MONTELUKAST SODIUM
  8. Cetirixine 10 mg [Concomitant]
  9. Zaditor eye drops [Concomitant]
  10. Beclomethasone dipropionate 80mcg, HFA [Concomitant]
  11. Fluticasone Propionate SOmcg [Concomitant]
  12. ALBUTEROL [Concomitant]
     Active Substance: ALBUTEROL
  13. ASA 1325 mg [Concomitant]
  14. ACETAMINOPHEN [Concomitant]
     Active Substance: ACETAMINOPHEN
  15. Bupropinon SR 200 mg [Concomitant]
  16. umeprazole 20 mg [Concomitant]
  17. BACLOFEN [Concomitant]
     Active Substance: BACLOFEN
  18. EZETIMIBE [Concomitant]
  19. Oxybutymin [Concomitant]
  20. Simethicone 180 mg [Concomitant]
  21. Estradiol Vaginal Crear [Concomitant]
  22. Tramadol Hc [Concomitant]
  23. Vitamins and others [Concomitant]
  24. Glucosamine 1500 mg/Chondriotin1200mg [Concomitant]
  25. Tumeric [Concomitant]
  26. Super B complex vitamin [Concomitant]
  27. Probotic daily [Concomitant]
  28. Vitamin 03 1000 units daily [Concomitant]
  29. MELATONIN [Concomitant]
  30. AREDS 2 [Concomitant]
  31. Cranberry [Concomitant]

REACTIONS (4)
  - Sinusitis [None]
  - Conjunctivitis [None]
  - Blindness [None]
  - Inflammation [None]
